FAERS Safety Report 7948254-9 (Version None)
Quarter: 2011Q4

REPORT INFORMATION
  Report Type: 
  Country: None (occurrence: None)
  Receive Date: 20111125
  Receipt Date: 20111115
  Transmission Date: 20120403
  Serious: Yes (Hospitalization, Other)
  Sender: FDA-Public Use
  Company Number: JPI-P-013962

PATIENT
  Age: 60 Year
  Sex: Female
  Weight: 56.6996 kg

DRUGS (11)
  1. XYREM [Suspect]
     Indication: CATAPLEXY
     Dosage: 4.5 GM (2.25 GM, 2 IN 1 D), ORAL, 6 GM (3 GM, 2 IN 1 D), ORAL, 4.5 GM (2.25 GM, 2 IN 1 D), ORAL
     Route: 048
     Dates: start: 20070309, end: 20070313
  2. XYREM [Suspect]
     Indication: CATAPLEXY
     Dosage: 4.5 GM (2.25 GM, 2 IN 1 D), ORAL, 6 GM (3 GM, 2 IN 1 D), ORAL, 4.5 GM (2.25 GM, 2 IN 1 D), ORAL
     Route: 048
     Dates: start: 20070314
  3. XYREM [Suspect]
     Indication: CATAPLEXY
     Dosage: 4.5 GM (2.25 GM, 2 IN 1 D), ORAL, 6 GM (3 GM, 2 IN 1 D), ORAL, 4.5 GM (2.25 GM, 2 IN 1 D), ORAL
     Route: 048
     Dates: start: 20070215, end: 20070308
  4. MAGNESIUM SULFATE [Concomitant]
  5. MULTI-VITAMINS [Concomitant]
  6. XYREM [Suspect]
     Indication: CATAPLEXY
     Dosage: 6 GM (3 GM, 2 IN 1 D), ORAL
     Route: 048
     Dates: start: 20110708
  7. EXEMESTANE [Suspect]
     Indication: BREAST CANCER STAGE III
     Dates: end: 20080901
  8. LEVOTHYROXINE SODIUM [Concomitant]
  9. METRONIDAZOLE [Concomitant]
  10. RADIATION THERAPY [Suspect]
     Indication: BREAST CANCER STAGE III
     Dates: end: 20081201
  11. OTHER UNSPECIFIED CHEMOTHERAPY [Suspect]
     Indication: BREAST CANCER STAGE III
     Dates: end: 20080901

REACTIONS (9)
  - OSTEOPENIA [None]
  - DIARRHOEA [None]
  - OEDEMA PERIPHERAL [None]
  - CONFUSIONAL STATE [None]
  - BREAST CANCER STAGE III [None]
  - UTERINE LEIOMYOMA [None]
  - GASTROOESOPHAGEAL REFLUX DISEASE [None]
  - EYELID OEDEMA [None]
  - OVARIAN CYST [None]
